FAERS Safety Report 6406083-1 (Version None)
Quarter: 2009Q4

REPORT INFORMATION
  Report Type: 
  Country: None (occurrence: None)
  Receive Date: 20091016
  Receipt Date: 20091016
  Transmission Date: 20100525
  Serious: Yes (Life-Threatening, Other)
  Sender: FDA-Public Use
  Company Number: None

PATIENT
  Age: 40 Year
  Sex: Female
  Weight: 86.1834 kg

DRUGS (4)
  1. CYMBALTA [Suspect]
     Indication: DEPRESSION
     Dosage: 60 MG BID PO
     Route: 048
  2. CYMBALTA [Suspect]
     Indication: PERONEAL MUSCULAR ATROPHY
     Dosage: 60 MG BID PO
     Route: 048
  3. CYMBALTA [Suspect]
     Indication: WEIGHT INCREASED
     Dosage: 60 MG BID PO
     Route: 048
  4. CYMBALTA [Suspect]
     Dosage: 20 MG TAPERED DOSAGE PO
     Route: 048

REACTIONS (12)
  - ANGER [None]
  - HEADACHE [None]
  - HYPERHIDROSIS [None]
  - HYPERTENSION [None]
  - MOOD SWINGS [None]
  - NAUSEA [None]
  - PARAESTHESIA [None]
  - PILOERECTION [None]
  - SUICIDAL IDEATION [None]
  - TREMOR [None]
  - VOMITING [None]
  - WITHDRAWAL SYNDROME [None]
